FAERS Safety Report 7049822-1 (Version None)
Quarter: 2010Q4

REPORT INFORMATION
  Report Type: 
  Country: None (occurrence: None)
  Receive Date: 20101018
  Receipt Date: 20100827
  Transmission Date: 20110411
  Serious: Yes (Other)
  Sender: FDA-Public Use
  Company Number: US-BAYER-201034687NA

PATIENT
  Age: 33 Year
  Sex: Female

DRUGS (1)
  1. MIRENA [Suspect]
     Indication: CONTRACEPTION
     Dosage: FREQUENCY: CONTINUOUS
     Route: 015
     Dates: start: 20100726, end: 20100824

REACTIONS (3)
  - DEVICE DISLOCATION [None]
  - PAIN [None]
  - VAGINAL HAEMORRHAGE [None]
